FAERS Safety Report 21627809 (Version 1)
Quarter: 2022Q4

REPORT INFORMATION
  Report Type: Spontaneous
  Country: US (occurrence: None)
  Receive Date: 20221121
  Receipt Date: 20221121
  Transmission Date: 20230112
  Serious: No
  Sender: FDA-Public Use
  Company Number: None

PATIENT
  Age: 58 Year
  Weight: 0.00 kg

DRUGS (1)
  1. SKYRIZI [Suspect]
     Active Substance: RISANKIZUMAB-RZAA
     Indication: Psoriasis
     Dosage: INJECTE 150MG (1 SYRINGE) SUBCUTANEOUSLY EVERY 12 AS DIRECTED ?
     Route: 058
     Dates: start: 202011

REACTIONS (1)
  - Respiratory disorder [None]
